FAERS Safety Report 9201423 (Version 1)
Quarter: 2013Q2

REPORT INFORMATION
  Report Type: Spontaneous
  Country: GB (occurrence: GB)
  Receive Date: 20130401
  Receipt Date: 20130401
  Transmission Date: 20140414
  Serious: Yes (Other)
  Sender: FDA-Public Use
  Company Number: GB-PFIZER INC-2013101451

PATIENT
  Age: 46 Year
  Sex: Male
  Weight: 82 kg

DRUGS (2)
  1. CHAMPIX [Suspect]
     Indication: SMOKING CESSATION THERAPY
     Dosage: 500 UG 1X/DAY
     Route: 048
     Dates: start: 20130305, end: 201303
  2. CHAMPIX [Suspect]
     Dosage: 500 UG, 2X/DAY
     Dates: start: 201303, end: 20130309

REACTIONS (5)
  - Mood altered [Recovered/Resolved]
  - Depressed mood [Recovered/Resolved]
  - Violence-related symptom [Recovered/Resolved]
  - Negative thoughts [Recovered/Resolved]
  - Self-injurious ideation [Recovered/Resolved]
